FAERS Safety Report 5465365-0 (Version None)
Quarter: 2007Q3

REPORT INFORMATION
  Report Type: 
  Country: None (occurrence: None)
  Receive Date: 20070920
  Receipt Date: 20070920
  Transmission Date: 20080115
  Serious: Yes (Death, Hospitalization)
  Sender: FDA-Public Use
  Company Number: None

PATIENT
  Age: 77 Year
  Sex: Male

DRUGS (1)
  1. LINEZOLID [Suspect]
     Indication: OSTEOMYELITIS
     Dosage: 600MG BID IV
     Route: 042
     Dates: start: 20070428, end: 20070528

REACTIONS (4)
  - LACTIC ACIDOSIS [None]
  - OPTIC NEUROPATHY [None]
  - SEPSIS [None]
  - THROMBOCYTOPENIA [None]
